FAERS Safety Report 14327761 (Version 8)
Quarter: 2022Q1

REPORT INFORMATION
  Report Type: Spontaneous
  Country: US (occurrence: US)
  Receive Date: 20171227
  Receipt Date: 20220118
  Transmission Date: 20220423
  Serious: No
  Sender: FDA-Public Use
  Company Number: US-PFIZER INC-2017546807

PATIENT
  Age: 78 Year
  Sex: Female
  Weight: 57 kg

DRUGS (7)
  1. XELJANZ XR [Suspect]
     Active Substance: TOFACITINIB CITRATE
     Indication: Rheumatoid arthritis
     Dosage: 11 MG, ONCE A DAY (IN THE EVENING)
     Route: 048
     Dates: start: 20161216
  2. XELJANZ XR [Suspect]
     Active Substance: TOFACITINIB CITRATE
     Dosage: 11 MG, UNK
  3. XELJANZ XR [Suspect]
     Active Substance: TOFACITINIB CITRATE
     Dosage: 11 MG, UNK
     Dates: end: 20191010
  4. LEVOTHYROXINE [Concomitant]
     Active Substance: LEVOTHYROXINE
     Indication: Hypothyroidism
     Dosage: 100 UG, UNK [ONCE A DAY MONDAY-SATURDAY AND HALF A TABLET ON SUNDAY]
     Route: 048
     Dates: start: 1992
  5. ALENDRONATE [Concomitant]
     Active Substance: ALENDRONATE SODIUM
     Indication: Osteoporosis
     Dosage: 70 MG, WEEKLY
     Route: 048
     Dates: start: 1996
  6. ALENDRONATE [Concomitant]
     Active Substance: ALENDRONATE SODIUM
     Dosage: UNK
     Dates: start: 201312
  7. LATANOPROST [Concomitant]
     Active Substance: LATANOPROST
     Indication: Glaucoma
     Dosage: 2 GTT, ONCE A DAY [AT BEDTIME]
     Route: 047
     Dates: start: 201405

REACTIONS (8)
  - Sinusitis [Recovered/Resolved]
  - Tooth infection [Recovered/Resolved]
  - Rash [Recovered/Resolved]
  - Blood cholesterol increased [Recovered/Resolved]
  - Urinary tract infection [Unknown]
  - Body height decreased [Unknown]
  - Hypoacusis [Unknown]
  - Memory impairment [Unknown]

NARRATIVE: CASE EVENT DATE: 20170927
